FAERS Safety Report 10833607 (Version 3)
Quarter: 2015Q4

REPORT INFORMATION
  Report Type: Not Available
  Country: DK (occurrence: DK)
  Receive Date: 20150219
  Receipt Date: 20151123
  Transmission Date: 20160304
  Serious: Yes (Hospitalization)
  Sender: FDA-Public Use
  Company Number: DK-MUNDIPHARMA DS AND PHARMACOVIGILANCE-GBR-2015-0025539

PATIENT
  Sex: Male
  Weight: 91 kg

DRUGS (7)
  1. PANODIL [Suspect]
     Active Substance: ACETAMINOPHEN
     Indication: MUSCULOSKELETAL PAIN
     Dosage: STYRKE: 500 MG
     Route: 048
     Dates: start: 2012
  2. OXYNORM 5 MG KAPSLER, HARDE [Suspect]
     Active Substance: OXYCODONE HYDROCHLORIDE
     Indication: MUSCULOSKELETAL PAIN
     Dosage: STYRKE: 5 MG
     Route: 048
     Dates: start: 20130213, end: 2013
  3. METRONIDAZOL                       /00012501/ [Suspect]
     Active Substance: METRONIDAZOLE
     Indication: PRODUCT USED FOR UNKNOWN INDICATION
     Dosage: 500 MG, UNK
     Route: 048
     Dates: start: 20140115
  4. IMADRAX [Suspect]
     Active Substance: AMOXICILLIN
     Indication: ABDOMINAL PAIN
     Dosage: STYRKE: 500 MG.
     Route: 048
     Dates: start: 20140115, end: 2014
  5. OXYCODONE HYDROCHLORIDE. [Suspect]
     Active Substance: OXYCODONE HYDROCHLORIDE
     Indication: MUSCULOSKELETAL PAIN
     Dosage: STYRKE: 5MG
     Route: 048
     Dates: start: 20130213
  6. IBUMETIN [Suspect]
     Active Substance: IBUPROFEN
     Indication: MUSCULOSKELETAL PAIN
     Dosage: STYRKE: 600 MG
     Route: 048
     Dates: start: 20130213, end: 2013
  7. PANTOPRAZOLE SODIUM. [Suspect]
     Active Substance: PANTOPRAZOLE SODIUM
     Indication: ABDOMINAL PAIN
     Dosage: DOSIS: BORGEREN KAN IKKE HUSKE HVILKEN DOSIS HAN TOG.?STYRKE: 40 MG.
     Route: 048
     Dates: start: 20140115, end: 2014

REACTIONS (12)
  - Diarrhoea [Not Recovered/Not Resolved]
  - Diarrhoea haemorrhagic [Not Recovered/Not Resolved]
  - Weight decreased [Not Recovered/Not Resolved]
  - Arthralgia [Not Recovered/Not Resolved]
  - Dyspepsia [Not Recovered/Not Resolved]
  - Nausea [Not Recovered/Not Resolved]
  - Eosinophilia [Not Recovered/Not Resolved]
  - Gastrooesophageal reflux disease [Recovered/Resolved]
  - Gastrointestinal disorder [Not Recovered/Not Resolved]
  - Gastritis [Not Recovered/Not Resolved]
  - Abdominal pain upper [Not Recovered/Not Resolved]
  - Vomiting [Not Recovered/Not Resolved]

NARRATIVE: CASE EVENT DATE: 2013
